FAERS Safety Report 20177497 (Version 1)
Quarter: 2021Q4

REPORT INFORMATION
  Report Type: Other
  Country: US (occurrence: None)
  Receive Date: 20211213
  Receipt Date: 20211213
  Transmission Date: 20220303
  Serious: No
  Sender: FDA-Public Use
  Company Number: US-ROCHE-2973311

PATIENT
  Age: 32 Year
  Sex: Male
  Weight: 81.720 kg

DRUGS (3)
  1. OCREVUS [Suspect]
     Active Substance: OCRELIZUMAB
     Indication: Multiple sclerosis
     Dosage: LONG INFUSION--TAKES 8 HOURS
     Route: 042
     Dates: start: 202004
  2. CHOLECALCIFEROL [Concomitant]
     Active Substance: CHOLECALCIFEROL
     Dosage: YES
     Route: 048
     Dates: start: 202001
  3. BIOTIN [Concomitant]
     Active Substance: BIOTIN
     Dosage: YES
     Route: 048
     Dates: start: 202001

REACTIONS (2)
  - Illness [Recovering/Resolving]
  - COVID-19 [Not Recovered/Not Resolved]

NARRATIVE: CASE EVENT DATE: 20211121
